FAERS Safety Report 5831891-5 (Version None)
Quarter: 2008Q3

REPORT INFORMATION
  Report Type: 
  Country: None (occurrence: None)
  Receive Date: 20080731
  Receipt Date: 20080724
  Transmission Date: 20090109
  Serious: Yes (Hospitalization)
  Sender: FDA-Public Use
  Company Number: TPG2008A00960

PATIENT
  Age: 51 Year
  Sex: Female

DRUGS (1)
  1. ACTOS [Suspect]
     Indication: DRUG USE FOR UNKNOWN INDICATION
     Dosage: 30 MG (30 MG, 1 IN 1 D)
     Route: 048
     Dates: start: 20050101, end: 20080101

REACTIONS (5)
  - FALL [None]
  - FRACTURED COCCYX [None]
  - KYPHOSIS [None]
  - PAIN [None]
  - THORACIC VERTEBRAL FRACTURE [None]
